FAERS Safety Report 7341123-7 (Version None)
Quarter: 2011Q1

REPORT INFORMATION
  Report Type: 
  Country: None (occurrence: None)
  Receive Date: 20110309
  Receipt Date: 20110303
  Transmission Date: 20110831
  Serious: Yes (Other)
  Sender: FDA-Public Use
  Company Number: A0902496A

PATIENT
  Age: 71 Year
  Sex: Female

DRUGS (6)
  1. DIOVAN [Concomitant]
  2. ASPIRIN [Concomitant]
  3. VENTOLIN [Suspect]
     Indication: CHRONIC OBSTRUCTIVE PULMONARY DISEASE
     Dosage: 2PUFF PER DAY
     Route: 055
     Dates: start: 20101219, end: 20101220
  4. SPIRIVA [Concomitant]
  5. PREDNISONE [Concomitant]
  6. PROAIR HFA [Concomitant]

REACTIONS (5)
  - MYOCARDIAL INFARCTION [None]
  - NAUSEA [None]
  - DRUG INTOLERANCE [None]
  - CHEST PAIN [None]
  - HEADACHE [None]
